FAERS Safety Report 7457556-4 (Version None)
Quarter: 2011Q2

REPORT INFORMATION
  Report Type: 
  Country: None (occurrence: None)
  Receive Date: 20110502
  Receipt Date: 20110502
  Transmission Date: 20111010
  Serious: No
  Sender: FDA-Public Use
  Company Number: None

PATIENT

DRUGS (1)
  1. FENTANYL [Suspect]
     Dosage: 500MCG ONCE IV BOLUS
     Route: 040
     Dates: start: 20110429, end: 20110429

REACTIONS (1)
  - RESPIRATORY RATE INCREASED [None]
